FAERS Safety Report 7295943-8 (Version None)
Quarter: 2011Q1

REPORT INFORMATION
  Report Type: 
  Country: None (occurrence: None)
  Receive Date: 20110216
  Receipt Date: 20110112
  Transmission Date: 20110831
  Serious: No
  Sender: FDA-Public Use
  Company Number: US-ABBOTT-11P-163-0696797-00

PATIENT
  Sex: Male
  Weight: 88.984 kg

DRUGS (4)
  1. EFFEXOR [Concomitant]
     Indication: PRODUCT USED FOR UNKNOWN INDICATION
  2. SIMCOR [Suspect]
     Indication: HYPERLIPIDAEMIA
     Dosage: 1000/40MG DAILY
     Dates: start: 20101201
  3. CARDIZEM [Concomitant]
     Indication: PRODUCT USED FOR UNKNOWN INDICATION
  4. ASPIRIN [Concomitant]
     Indication: PRODUCT USED FOR UNKNOWN INDICATION

REACTIONS (2)
  - VOMITING [None]
  - GASTROOESOPHAGEAL REFLUX DISEASE [None]
